FAERS Safety Report 24789408 (Version 1)
Quarter: 2024Q4

REPORT INFORMATION
  Report Type: Spontaneous
  Country: DE (occurrence: DE)
  Receive Date: 20241230
  Receipt Date: 20241230
  Transmission Date: 20250114
  Serious: Yes (Other)
  Sender: ALEXION PHARMACEUTICALS
  Company Number: DE-002147023-NVSC2024DE009399

PATIENT

DRUGS (18)
  1. FASLODEX [Suspect]
     Active Substance: FULVESTRANT
     Indication: Breast cancer metastatic
     Dosage: 500 MG (EVERY FOUR WEEKS)
  2. FASLODEX [Suspect]
     Active Substance: FULVESTRANT
     Dosage: 500 MG (EVERY FOUR WEEKS)
     Route: 030
  3. FASLODEX [Suspect]
     Active Substance: FULVESTRANT
     Dosage: 500 MG (EVERY FOUR WEEKS)
  4. FASLODEX [Suspect]
     Active Substance: FULVESTRANT
     Dosage: 500 MG (EVERY FOUR WEEKS)
     Route: 030
  5. EXEMESTANE [Suspect]
     Active Substance: EXEMESTANE
     Indication: Breast cancer metastatic
     Dosage: 25 MG (DAILY)
     Route: 048
  6. EXEMESTANE [Suspect]
     Active Substance: EXEMESTANE
     Dosage: 25 MG (DAILY)
  7. ZOMETA [Suspect]
     Active Substance: ZOLEDRONIC ACID
     Indication: Product used for unknown indication
     Dosage: 400 MG (SCHEMA 21 DAYS INTAKE, 7 DAYS PAUSE)
  8. ZOMETA [Suspect]
     Active Substance: ZOLEDRONIC ACID
     Dosage: 400 MG (SCHEMA 21 DAYS INTAKE, 7 DAYS PAUSE)
     Route: 048
  9. ZOMETA [Suspect]
     Active Substance: ZOLEDRONIC ACID
     Dosage: 4 MG, Q4W
     Route: 065
  10. ZOMETA [Suspect]
     Active Substance: ZOLEDRONIC ACID
     Dosage: 4 MG, Q4W
     Route: 065
  11. RIBOCICLIB [Suspect]
     Active Substance: RIBOCICLIB
     Indication: Breast cancer metastatic
     Dosage: 600 MG (SCHEME 21 DAYS INTAKE, 7 DAYS PAUSE)
  12. RIBOCICLIB [Suspect]
     Active Substance: RIBOCICLIB
     Dosage: 600 MG (SCHEME 21 DAYS INTAKE, 7 DAYS PAUSE)
     Route: 048
  13. RIBOCICLIB [Suspect]
     Active Substance: RIBOCICLIB
     Dosage: 400 MG (SCHEME 21 DAYS INTAKE, 7 DAYS PAUSE)
  14. RIBOCICLIB [Suspect]
     Active Substance: RIBOCICLIB
     Dosage: 400 MG (SCHEME 21 DAYS INTAKE, 7 DAYS PAUSE)
     Route: 048
  15. RIBOCICLIB [Suspect]
     Active Substance: RIBOCICLIB
     Dosage: 400 MG (SCHEME 21 DAYS INTAKE, 7 DAYS PAUSE)
  16. RIBOCICLIB [Suspect]
     Active Substance: RIBOCICLIB
     Dosage: 400 MG (SCHEME 21 DAYS INTAKE, 7 DAYS PAUSE)
     Route: 048
  17. RIBOCICLIB [Suspect]
     Active Substance: RIBOCICLIB
     Dosage: 200 MG (SCHEME 21 DAYS INTAKE, 7 DAYS PAUSE)
  18. RIBOCICLIB [Suspect]
     Active Substance: RIBOCICLIB
     Dosage: 200 MG (SCHEME 21 DAYS INTAKE, 7 DAYS PAUSE)
     Route: 048

REACTIONS (4)
  - Pain in jaw [Not Recovered/Not Resolved]
  - Osteonecrosis of jaw [Recovered/Resolved with Sequelae]
  - Erythema [Not Recovered/Not Resolved]
  - Swelling [Not Recovered/Not Resolved]
